FAERS Safety Report 6349247-8 (Version None)
Quarter: 2009Q3

REPORT INFORMATION
  Report Type: 
  Country: None (occurrence: None)
  Receive Date: 20090911
  Receipt Date: 20090902
  Transmission Date: 20100115
  Serious: Yes (Hospitalization, Congenital Anomaly)
  Sender: FDA-Public Use
  Company Number: A0746207A

PATIENT
  Sex: Female
  Weight: 1.4 kg

DRUGS (4)
  1. PAXIL [Suspect]
     Indication: DEPRESSION
     Dosage: 20MG PER DAY
     Dates: start: 20000401, end: 20001001
  2. GLUCOPHAGE [Concomitant]
  3. DIFLUCAN [Concomitant]
     Dates: start: 20000601
  4. VITAMIN TAB [Concomitant]

REACTIONS (4)
  - CARDIAC FAILURE CONGESTIVE [None]
  - DRUG EXPOSURE DURING PREGNANCY [None]
  - PILONIDAL CYST CONGENITAL [None]
  - VENTRICULAR SEPTAL DEFECT [None]
